FAERS Safety Report 15712567 (Version 1)
Quarter: 2018Q4

REPORT INFORMATION
  Report Type: Report from Study
  Country: None (occurrence: US)
  Receive Date: 20181212
  Receipt Date: 20181212
  Transmission Date: 20190205
  Serious: Yes (Other)
  Sender: FDA-Public Use
  Company Number: US-ABBVIE-17K-163-1993903-00

PATIENT
  Sex: Male

DRUGS (2)
  1. HUMIRA [Suspect]
     Active Substance: ADALIMUMAB
     Indication: RHEUMATOID ARTHRITIS
     Route: 058
  2. HUMIRA [Suspect]
     Active Substance: ADALIMUMAB
     Indication: PSORIATIC ARTHROPATHY

REACTIONS (17)
  - Procedural pain [Unknown]
  - Fall [Unknown]
  - Back pain [Not Recovered/Not Resolved]
  - Pain [Unknown]
  - Upper limb fracture [Unknown]
  - Pelvic fracture [Unknown]
  - Hip arthroplasty [Unknown]
  - Limb injury [Unknown]
  - Stress [Not Recovered/Not Resolved]
  - Fall [Unknown]
  - Hip surgery [Recovered/Resolved]
  - Joint injury [Unknown]
  - Neurological procedural complication [Unknown]
  - Muscle strain [Unknown]
  - Hypertension [Not Recovered/Not Resolved]
  - Fall [Recovered/Resolved]
  - Hip fracture [Unknown]

NARRATIVE: CASE EVENT DATE: 2010
